FAERS Safety Report 5436506-6 (Version None)
Quarter: 2007Q3

REPORT INFORMATION
  Report Type: 
  Country: None (occurrence: None)
  Receive Date: 20070831
  Receipt Date: 20070823
  Transmission Date: 20080115
  Serious: Yes (Other)
  Sender: FDA-Public Use
  Company Number: US-JNJFOC-20070805503

PATIENT
  Age: 6 Year
  Sex: Female

DRUGS (3)
  1. INVEGA [Suspect]
     Indication: BIPOLAR DISORDER
     Route: 048
  2. SEROQUEL [Concomitant]
     Indication: BIPOLAR DISORDER
  3. CLONADINE [Concomitant]
     Indication: BIPOLAR DISORDER

REACTIONS (1)
  - DYSTONIA [None]
